FAERS Safety Report 25934721 (Version 1)
Quarter: 2025Q4

REPORT INFORMATION
  Report Type: Spontaneous
  Country: US (occurrence: None)
  Receive Date: 20251016
  Receipt Date: 20251016
  Transmission Date: 20260118
  Serious: No
  Sender: FDA-CTU
  Company Number: None

PATIENT
  Age: 82 Year
  Sex: Female
  Weight: 54.9 kg

DRUGS (1)
  1. PROLIA [Suspect]
     Active Substance: DENOSUMAB
     Dosage: OTHER FREQUENCY : EVERY 6 MONTHS;?
     Route: 058

REACTIONS (6)
  - Myalgia [None]
  - Bone pain [None]
  - Fatigue [None]
  - Hypertension [None]
  - Tachycardia [None]
  - Coronary artery disease [None]

NARRATIVE: CASE EVENT DATE: 20251016
